FAERS Safety Report 14942380 (Version 1)
Quarter: 2018Q2

REPORT INFORMATION
  Report Type: Spontaneous
  Country: VE (occurrence: VE)
  Receive Date: 20180528
  Receipt Date: 20180528
  Transmission Date: 20180711
  Serious: Yes (Other)
  Sender: FDA-Public Use
  Company Number: VE-MERCK KGAA-2048513

PATIENT
  Age: 25 Year
  Sex: Female

DRUGS (2)
  1. EUTHYROX [Suspect]
     Active Substance: LEVOTHYROXINE SODIUM
  2. NOVOTHYROX [Suspect]
     Active Substance: LEVOTHYROXINE SODIUM
     Indication: HYPERTHYROIDISM

REACTIONS (14)
  - Hypothyroidism [None]
  - Malaise [None]
  - Depressed mood [Not Recovered/Not Resolved]
  - Headache [Not Recovered/Not Resolved]
  - Myocardial infarction [None]
  - Discomfort [Not Recovered/Not Resolved]
  - Overweight [None]
  - Depression [Not Recovered/Not Resolved]
  - Neck pain [Not Recovered/Not Resolved]
  - Mood altered [Not Recovered/Not Resolved]
  - Anxiety [Not Recovered/Not Resolved]
  - Eye pain [Not Recovered/Not Resolved]
  - Emotional distress [None]
  - Alopecia [Recovered/Resolved]
